FAERS Safety Report 9724513 (Version 1)
Quarter: 2013Q4

REPORT INFORMATION
  Report Type: Spontaneous
  Country: US (occurrence: US)
  Receive Date: 20131202
  Receipt Date: 20131202
  Transmission Date: 20140711
  Serious: No
  Sender: FDA-Public Use
  Company Number: US-AMGEN-USASP2013081687

PATIENT
  Age: 64 Year
  Sex: Female

DRUGS (2)
  1. ENBREL [Suspect]
     Indication: RHEUMATOID ARTHRITIS
     Dosage: 50 MG, QWK
     Route: 065
     Dates: start: 2006, end: 2012
  2. CIMZIA [Concomitant]
     Dosage: UNK
     Dates: end: 201205

REACTIONS (2)
  - Erythema [Not Recovered/Not Resolved]
  - Lymphadenopathy [Recovered/Resolved]
